FAERS Safety Report 17952076 (Version 1)
Quarter: 2020Q2

REPORT INFORMATION
  Report Type: Spontaneous
  Country: CA (occurrence: CA)
  Receive Date: 20200626
  Receipt Date: 20200626
  Transmission Date: 20200714
  Serious: Yes (Disabling)
  Sender: FDA-Public Use
  Company Number: NVSC2020CA180049

PATIENT
  Age: 69 Year
  Sex: Male
  Weight: 74.83 kg

DRUGS (1)
  1. VALSARTAN. [Suspect]
     Active Substance: VALSARTAN
     Indication: HYPERTENSION
     Dosage: 80.0 MG, QD
     Route: 048

REACTIONS (3)
  - Therapeutic product effect incomplete [Recovered/Resolved]
  - Erectile dysfunction [Recovered/Resolved]
  - Headache [Recovered/Resolved]
